FAERS Safety Report 5082145-9 (Version None)
Quarter: 2006Q3

REPORT INFORMATION
  Report Type: 
  Country: None (occurrence: None)
  Receive Date: 20060817
  Receipt Date: 20060814
  Transmission Date: 20061208
  Serious: Yes (Death)
  Sender: FDA-Public Use
  Company Number: 2006UW16144

PATIENT
  Age: 53 Year
  Sex: Female
  Weight: 99.8 kg

DRUGS (3)
  1. NEXIUM [Suspect]
     Route: 048
  2. DOXYCYCLINE [Concomitant]
  3. HOST OF DIFFERENT MEDICATIONS [Concomitant]

REACTIONS (1)
  - DEATH [None]
